FAERS Safety Report 9248282 (Version 1)
Quarter: 2013Q2

REPORT INFORMATION
  Report Type: Spontaneous
  Country: US (occurrence: US)
  Receive Date: 20130423
  Receipt Date: 20130423
  Transmission Date: 20140414
  Serious: Yes (Hospitalization)
  Sender: FDA-Public Use
  Company Number: US-JNJFOC-20130407966

PATIENT
  Age: 64 Year
  Sex: Female
  Weight: 77.11 kg

DRUGS (14)
  1. ITRACONAZOLE [Suspect]
     Indication: HISTOPLASMOSIS
     Route: 048
     Dates: start: 201209, end: 201302
  2. SPORANOX [Suspect]
     Indication: HISTOPLASMOSIS
     Route: 042
     Dates: start: 201302, end: 201303
  3. SPORANOX [Suspect]
     Indication: HISTOPLASMOSIS
     Route: 042
     Dates: start: 201202, end: 201202
  4. SPORANOX [Suspect]
     Indication: HISTOPLASMOSIS
     Route: 048
     Dates: start: 201202, end: 201209
  5. SPORANOX [Suspect]
     Indication: HISTOPLASMOSIS
     Route: 048
     Dates: start: 201303
  6. LISINOPRIL HCTZ [Concomitant]
     Indication: BLOOD PRESSURE
     Dosage: 10/12.5MG
     Route: 048
     Dates: start: 2012
  7. METHOTREXATE [Concomitant]
     Indication: ARTHRITIS
     Route: 048
     Dates: start: 2011
  8. ZETIA [Concomitant]
     Indication: BLOOD CHOLESTEROL
     Route: 048
     Dates: start: 2010
  9. PLAVIX [Concomitant]
     Indication: ANTICOAGULANT THERAPY
     Route: 048
  10. PREDNISONE [Concomitant]
     Indication: ARTHRITIS
     Route: 048
     Dates: start: 2009
  11. LANZOPRAL [Concomitant]
     Indication: GASTRIC DISORDER
     Dosage: AT NIGHT
     Route: 048
     Dates: start: 2012
  12. PREVACID [Concomitant]
     Indication: GASTRIC DISORDER
     Route: 048
     Dates: start: 2001, end: 2012
  13. LEVOTHYROXINE [Concomitant]
     Indication: THYROID DISORDER
     Route: 048
     Dates: start: 2009
  14. CETIRIZINE HCL [Concomitant]
     Indication: MULTIPLE ALLERGIES
     Route: 048

REACTIONS (7)
  - Acute pulmonary histoplasmosis [Unknown]
  - Malaise [Not Recovered/Not Resolved]
  - Dyspnoea [Recovering/Resolving]
  - Hepatic enzyme increased [Unknown]
  - Incorrect drug dosage form administered [Recovered/Resolved]
  - Drug dispensing error [Recovered/Resolved]
  - Fatigue [Not Recovered/Not Resolved]
